FAERS Safety Report 8953500 (Version 4)
Quarter: 2012Q4

REPORT INFORMATION
  Report Type: Report from Study
  Country: DE (occurrence: DE)
  Receive Date: 20121206
  Receipt Date: 20121221
  Transmission Date: 20130627
  Serious: Yes (Hospitalization)
  Sender: FDA-Public Use
  Company Number: DE-GLAXOSMITHKLINE-B0849974A

PATIENT
  Age: 31 Year
  Sex: Female
  Weight: 72 kg

DRUGS (9)
  1. LAPATINIB [Suspect]
     Indication: BREAST NEOPLASM
     Dosage: 750MG Per day
     Route: 048
     Dates: start: 20120831
  2. HERCEPTIN [Suspect]
     Indication: BREAST NEOPLASM
     Dosage: 434MG Every 3 weeks
     Route: 042
     Dates: start: 20120829
  3. CARBOPLATIN [Suspect]
     Indication: BREAST NEOPLASM
     Route: 042
     Dates: start: 20120830
  4. MYOCET [Suspect]
     Indication: BREAST NEOPLASM
     Route: 042
     Dates: start: 20120830
  5. TAXOL [Suspect]
     Indication: BREAST NEOPLASM
     Dosage: 149MG Weekly
     Route: 042
     Dates: start: 20120830
  6. CHLORPHENAMINE [Concomitant]
  7. SALBUTAMOL [Concomitant]
  8. GRANOCYTE [Concomitant]
     Dates: start: 20121030
  9. LOPERAMIDE [Concomitant]
     Dates: start: 20120901

REACTIONS (1)
  - Sinusitis [Recovered/Resolved]
